FAERS Safety Report 9122235 (Version 2)
Quarter: 2013Q1

REPORT INFORMATION
  Report Type: Spontaneous
  Country: FR (occurrence: FR)
  Receive Date: 20130227
  Receipt Date: 20130305
  Transmission Date: 20140127
  Serious: Yes (Other)
  Sender: FDA-Public Use
  Company Number: PHHY2012FR085825

PATIENT
  Age: 67 Year
  Sex: Male

DRUGS (3)
  1. COTAREG [Suspect]
     Indication: HYPERTENSION
     Dosage: 1 DF, (160 MG VALS AND 12.5 MG HCTZ),QD
     Dates: start: 2005, end: 201105
  2. COTAREG [Suspect]
     Dosage: 1 DF, (160 MG VALS AND 12.5 MG HCTZ),QD
     Dates: start: 201109, end: 201209
  3. COTAREG [Suspect]
     Dosage: 1 DF, (160 MG VALS AND 25 MG HCTZ),QD
     Dates: start: 201209, end: 201210

REACTIONS (6)
  - Burning sensation [Not Recovered/Not Resolved]
  - Oedema peripheral [Not Recovered/Not Resolved]
  - Pruritus [Not Recovered/Not Resolved]
  - Pain in extremity [Not Recovered/Not Resolved]
  - Gait disturbance [Not Recovered/Not Resolved]
  - Neuropathy peripheral [Not Recovered/Not Resolved]
